FAERS Safety Report 7589188-1 (Version None)
Quarter: 2011Q3

REPORT INFORMATION
  Report Type: 
  Country: None (occurrence: None)
  Receive Date: 20110705
  Receipt Date: 20110628
  Transmission Date: 20111222
  Serious: Yes (Other)
  Sender: FDA-Public Use
  Company Number: GB-JNJFOC-20110612773

PATIENT
  Age: 12 Year
  Sex: Female
  Weight: 60 kg

DRUGS (1)
  1. CONCERTA [Suspect]
     Indication: STRESS URINARY INCONTINENCE
     Route: 048

REACTIONS (2)
  - HYPERTENSION [None]
  - LOSS OF CONSCIOUSNESS [None]
